FAERS Safety Report 22733855 (Version 4)
Quarter: 2023Q4

REPORT INFORMATION
  Report Type: Report from Study
  Country: US (occurrence: US)
  Receive Date: 20230721
  Receipt Date: 20231004
  Transmission Date: 20240110
  Serious: No
  Sender: FDA-Public Use
  Company Number: US-002147023-NVSC2023US160829

PATIENT
  Sex: Male

DRUGS (2)
  1. COSENTYX [Suspect]
     Active Substance: SECUKINUMAB
     Indication: Psoriasis
     Dosage: 300 MG (INJECT 300 MG SUBCUTANEOUSLY ON WEEK 4) (OTHER)
     Route: 058
  2. COSENTYX [Suspect]
     Active Substance: SECUKINUMAB
     Dosage: 300 MG, QMO (INJECT 300 MG SUBCUTANEOUSLY ON WEEK 4, THEN EVERY 4 WEEKS THEREAFTER)
     Route: 058

REACTIONS (1)
  - Treatment failure [Unknown]
